FAERS Safety Report 9689457 (Version 1)
Quarter: 2013Q4

REPORT INFORMATION
  Report Type: Spontaneous
  Country: CN (occurrence: CN)
  Receive Date: 20131114
  Receipt Date: 20131114
  Transmission Date: 20140711
  Serious: Yes (Hospitalization)
  Sender: FDA-Public Use
  Company Number: PHHY2013CN129534

PATIENT
  Age: 52 Year
  Sex: Female

DRUGS (1)
  1. IMATINIB [Suspect]
     Indication: CHRONIC MYELOID LEUKAEMIA
     Dosage: 400 MG,/D
     Dates: start: 201209

REACTIONS (12)
  - Interstitial lung disease [Unknown]
  - Productive cough [Recovered/Resolved]
  - Dyspnoea [Recovered/Resolved]
  - Pyrexia [Recovered/Resolved]
  - Conjunctival hyperaemia [Unknown]
  - Eyelid oedema [Unknown]
  - Erythema of eyelid [Unknown]
  - Computerised tomogram abnormal [Recovering/Resolving]
  - Papule [Unknown]
  - Pulmonary function test decreased [Unknown]
  - Rash generalised [Recovered/Resolved]
  - Pruritus [Unknown]
